FAERS Safety Report 8316769-X (Version None)
Quarter: 2012Q2

REPORT INFORMATION
  Report Type: 
  Country: None (occurrence: None)
  Receive Date: 20120425
  Receipt Date: 20120410
  Transmission Date: 20120825
  Serious: Yes (Other)
  Sender: FDA-Public Use
  Company Number: JPI-P-020688

PATIENT
  Age: 55 Year
  Sex: Female

DRUGS (16)
  1. DESVENLAFAXINE SUCCINATE [Concomitant]
  2. PANTOPRAZOLE [Concomitant]
  3. MONTELUKAST SODIUM [Concomitant]
  4. POTASSIUM CHLORIDE [Concomitant]
  5. VALSARTAN [Concomitant]
  6. CLONAZEPAM [Concomitant]
  7. XYREM [Suspect]
     Indication: SLEEP DISORDER
     Dosage: 4.5 GM (2.25 GM, 2 IN 1 D), ORAL, 9 GM (4.5 GM, 2 IN 1 D), ORAL
     Route: 048
     Dates: start: 20081027
  8. XYREM [Suspect]
     Indication: SLEEP DISORDER
     Dosage: 4.5 GM (2.25 GM, 2 IN 1 D), ORAL, 9 GM (4.5 GM, 2 IN 1 D), ORAL
     Route: 048
     Dates: start: 20080901
  9. MELOXICAM [Concomitant]
  10. DILTIAZEM [Concomitant]
  11. HYOSCYAMINE [Concomitant]
  12. METOCLOPRAMIDE [Concomitant]
  13. TRIAMTERENE AND HYDROCHLOROTHIAZIDE [Concomitant]
  14. AZELASTINE HCL [Concomitant]
  15. FLUTICASONE PROPIONATE [Concomitant]
  16. LEVOTHYROXINE SODIUM [Concomitant]

REACTIONS (1)
  - BREAST CANCER [None]
